FAERS Safety Report 17709299 (Version 1)
Quarter: 2020Q2

REPORT INFORMATION
  Report Type: Spontaneous
  Country: FR (occurrence: FR)
  Receive Date: 20200426
  Receipt Date: 20200426
  Transmission Date: 20200714
  Serious: Yes (Other)
  Sender: FDA-Public Use
  Company Number: FR-AUROBINDO-AUR-APL-2020-020708

PATIENT
  Age: 67 Year
  Sex: Female

DRUGS (18)
  1. OXALIPLATIN. [Suspect]
     Active Substance: OXALIPLATIN
     Indication: HEPATIC CANCER
     Dosage: 130 MILLIGRAM, EVERY 2 WEEK
     Route: 065
     Dates: start: 20191213
  2. ZYMAD [Concomitant]
     Active Substance: CHOLECALCIFEROL
     Indication: FRACTURE
  3. LEVEMIR [Concomitant]
     Active Substance: INSULIN DETEMIR
     Indication: TYPE 2 DIABETES MELLITUS
     Dosage: UNK UNK, ONCE A DAY
     Route: 065
     Dates: start: 20191217
  4. FLUOROURACIL. [Suspect]
     Active Substance: FLUOROURACIL
     Indication: HEPATIC CANCER
     Dosage: 600+3650 MG, EVERY 2 WEEKS
     Route: 065
     Dates: start: 20191213
  5. ATEZOLIZUMAB. [Suspect]
     Active Substance: ATEZOLIZUMAB
     Indication: PRODUCT USED FOR UNKNOWN INDICATION
     Dosage: 1200 MILLIGRAM, EVERY 3 WEEKS
     Route: 041
     Dates: start: 20191008
  6. ATEZOLIZUMAB. [Suspect]
     Active Substance: ATEZOLIZUMAB
     Dosage: 1200 MILLIGRAM, EVERY 3 WEEKS
     Route: 041
     Dates: start: 20190918
  7. ETOPOSIDE. [Suspect]
     Active Substance: ETOPOSIDE
     Indication: PRODUCT USED FOR UNKNOWN INDICATION
     Dosage: UNK, EVERY 2 WEEKS
     Route: 065
  8. ACLASTA [Concomitant]
     Active Substance: ZOLEDRONIC ACID
     Indication: FRACTURE
     Dosage: UNK
     Route: 065
     Dates: start: 20191107, end: 20191107
  9. ZYMAD [Concomitant]
     Active Substance: CHOLECALCIFEROL
     Indication: SARCOPENIA
     Dosage: UNK UNK, EVERY WEEK
     Route: 065
     Dates: start: 20191107
  10. BEVACIZUMAB. [Suspect]
     Active Substance: BEVACIZUMAB
     Indication: HEPATIC CANCER
     Dosage: 262.5 MILLIGRAM, EVERY 2 WEEKS
     Route: 065
     Dates: start: 20191213
  11. PARACETAMOL [Concomitant]
     Active Substance: ACETAMINOPHEN
     Indication: FRACTURE
     Dosage: UNK UNK, FOUR TIMES/DAY
     Route: 065
     Dates: start: 20190919
  12. SOLU-MEDROL [Concomitant]
     Active Substance: METHYLPREDNISOLONE SODIUM SUCCINATE
     Indication: HEPATIC CANCER
     Dosage: UNK, EVERY 2 WEEKS
     Route: 065
     Dates: start: 20191213
  13. ATEZOLIZUMAB. [Suspect]
     Active Substance: ATEZOLIZUMAB
     Dosage: 1200 MILLIGRAM, EVERY 3 WEEKS
     Route: 041
     Dates: start: 20190827
  14. CARBOPLATIN. [Suspect]
     Active Substance: CARBOPLATIN
     Indication: PRODUCT USED FOR UNKNOWN INDICATION
     Dosage: UNK
     Route: 065
  15. PACLITAXEL. [Suspect]
     Active Substance: PACLITAXEL
     Indication: PRODUCT USED FOR UNKNOWN INDICATION
     Dosage: UNK
     Route: 065
  16. IRINOTECAN [Concomitant]
     Active Substance: IRINOTECAN
     Indication: HEPATIC CANCER
     Dosage: UNK, 2 WEEKS
     Route: 065
     Dates: start: 20200313
  17. TRAMADOL. [Concomitant]
     Active Substance: TRAMADOL
     Indication: FRACTURE
     Dosage: UNK
     Route: 065
     Dates: start: 20190919
  18. ZOPHREN [Concomitant]
     Active Substance: ONDANSETRON
     Indication: HEPATIC CANCER
     Dosage: UNK, EVERY 2 WEEKS
     Route: 065
     Dates: start: 20191213

REACTIONS (3)
  - Thrombocytopenia [Recovered/Resolved]
  - Neutropenia [Not Recovered/Not Resolved]
  - Asthenia [Recovered/Resolved]

NARRATIVE: CASE EVENT DATE: 20200207
